FAERS Safety Report 4911328-0 (Version None)
Quarter: 2006Q1

REPORT INFORMATION
  Report Type: 
  Country: None (occurrence: None)
  Receive Date: 20060113
  Receipt Date: 20051110
  Transmission Date: 20060701
  Serious: No
  Sender: FDA-Public Use
  Company Number: 2005SP003923

PATIENT
  Age: 95 Year
  Sex: Male

DRUGS (7)
  1. LUNESTA [Suspect]
     Indication: INSOMNIA
     Dosage: 2 MG;HS;ORAL
     Route: 048
     Dates: start: 20051001, end: 20051201
  2. PROSCAR [Concomitant]
  3. LASIX [Concomitant]
  4. VALIUM [Concomitant]
  5. AMLODIPINE BESYLATE [Concomitant]
  6. UROXATRAL [Concomitant]
  7. AMBIEN [Concomitant]

REACTIONS (3)
  - DRUG INEFFECTIVE [None]
  - INSOMNIA [None]
  - OEDEMA PERIPHERAL [None]
